FAERS Safety Report 21992978 (Version 3)
Quarter: 2024Q4

REPORT INFORMATION
  Report Type: Report from Study
  Country: BR (occurrence: BR)
  Receive Date: 20230215
  Receipt Date: 20241001
  Transmission Date: 20250115
  Serious: Yes (Other)
  Sender: ABBVIE
  Company Number: BR-ABBVIE-4305858

PATIENT
  Age: 16 Year
  Sex: Male
  Weight: 45 kg

DRUGS (3)
  1. RINVOQ [Suspect]
     Active Substance: UPADACITINIB
     Indication: Dermatitis atopic
     Dosage: 2 TABLET?INCREASED DOSE
     Route: 048
     Dates: end: 2023
  2. RINVOQ [Suspect]
     Active Substance: UPADACITINIB
     Indication: Dermatitis atopic
     Route: 048
     Dates: start: 20220726
  3. BUDESONIDE [Concomitant]
     Active Substance: BUDESONIDE
     Indication: Asthma

REACTIONS (7)
  - Seizure [Unknown]
  - Drug effect less than expected [Unknown]
  - Pruritus [Unknown]
  - Skin injury [Unknown]
  - Hypersensitivity [Unknown]
  - Skin discharge [Unknown]
  - Skin fissures [Unknown]

NARRATIVE: CASE EVENT DATE: 20221101
